FAERS Safety Report 15110736 (Version 1)
Quarter: 2018Q3

REPORT INFORMATION
  Report Type: Spontaneous
  Country: CN (occurrence: CN)
  Receive Date: 20180705
  Receipt Date: 20180705
  Transmission Date: 20181010
  Serious: Yes (Hospitalization)
  Sender: FDA-Public Use
  Company Number: CN-PFIZER INC-2018266071

PATIENT
  Age: 48 Year
  Sex: Male
  Weight: 80 kg

DRUGS (1)
  1. NORVASC [Suspect]
     Active Substance: AMLODIPINE BESYLATE
     Indication: HYPERTENSION
     Dosage: 5 MG, 1X/DAY
     Route: 048
     Dates: start: 20180320, end: 20180408

REACTIONS (8)
  - Hunger [Recovering/Resolving]
  - Frequent bowel movements [Recovering/Resolving]
  - Flushing [Recovering/Resolving]
  - Anaphylactic reaction [Recovering/Resolving]
  - Heart rate increased [Recovering/Resolving]
  - Palpitations [Recovering/Resolving]
  - Blood pressure increased [Recovered/Resolved]
  - Dizziness [Recovering/Resolving]

NARRATIVE: CASE EVENT DATE: 20180325
